FAERS Safety Report 5869989-8 (Version None)
Quarter: 2008Q3

REPORT INFORMATION
  Report Type: 
  Country: None (occurrence: None)
  Receive Date: 20080904
  Receipt Date: 20080904
  Transmission Date: 20090109
  Serious: Yes (Hospitalization)
  Sender: FDA-Public Use
  Company Number: PHEH1995US03046

PATIENT
  Sex: Male
  Weight: 136.8 kg

DRUGS (8)
  1. SANDIMMUNE [Suspect]
     Route: 048
     Dates: start: 19951101
  2. SOLU-MEDROL [Concomitant]
  3. PREDNISONE TAB [Concomitant]
  4. IMURAN [Concomitant]
  5. BACTRIM [Concomitant]
  6. ACYCLOVIR [Concomitant]
  7. FLUCONAZOLE [Concomitant]
  8. NIZATIDINE [Concomitant]

REACTIONS (5)
  - BLOOD CREATININE INCREASED [None]
  - NAUSEA [None]
  - PYREXIA [None]
  - TRANSPLANT REJECTION [None]
  - VOMITING [None]
